FAERS Safety Report 19748347 (Version 2)
Quarter: 2021Q4

REPORT INFORMATION
  Report Type: Spontaneous
  Country: SI (occurrence: SI)
  Receive Date: 20210825
  Receipt Date: 20211111
  Transmission Date: 20220303
  Serious: Yes (Life-Threatening, Hospitalization, Disabling)
  Sender: FDA-Public Use
  Company Number: None

PATIENT
  Age: 45 Year
  Sex: Female

DRUGS (2)
  1. NUVARING [Suspect]
     Active Substance: ETHINYL ESTRADIOL\ETONOGESTREL
     Indication: Salpingo-oophorectomy unilateral
     Dosage: 0.120 MG/0.015 MG PER 24H
     Route: 066
     Dates: start: 20210602, end: 2021
  2. COMIRNATY [Concomitant]
     Active Substance: TOZINAMERAN
     Indication: COVID-19 immunisation
     Dosage: 2 DOSE, BATCH NUMBER FD8274 DOSE NUMBER: 2ND; FORMULATION: CONCENTRATE FOR DISPERSION FOR INJECTION
     Route: 030
     Dates: start: 20210708, end: 20210708

REACTIONS (3)
  - Pulmonary embolism [Recovering/Resolving]
  - Ischaemic stroke [Recovering/Resolving]
  - Paradoxical embolism [Recovering/Resolving]

NARRATIVE: CASE EVENT DATE: 20210715
